FAERS Safety Report 23268542 (Version 1)
Quarter: 2023Q4

REPORT INFORMATION
  Report Type: Spontaneous
  Country: CA (occurrence: CA)
  Receive Date: 20231206
  Receipt Date: 20231206
  Transmission Date: 20240110
  Serious: Yes (Other)
  Sender: FDA-Public Use
  Company Number: CA-FOUNDATIONCONSUMERHC-2023-CA-002990

PATIENT
  Age: 35 Year
  Sex: Female
  Weight: 53.52 kg

DRUGS (1)
  1. LEVONORGESTREL [Suspect]
     Active Substance: LEVONORGESTREL
     Indication: Product use in unapproved indication
     Dosage: 1.5 MG
     Route: 048
     Dates: start: 20230927, end: 20230927

REACTIONS (4)
  - Intentional product misuse [Recovered/Resolved]
  - Product use in unapproved indication [Recovered/Resolved]
  - Exposure during pregnancy [Recovered/Resolved]
  - Abortion spontaneous [Unknown]

NARRATIVE: CASE EVENT DATE: 20230927
